FAERS Safety Report 15772580 (Version 1)
Quarter: 2018Q4

REPORT INFORMATION
  Report Type: Spontaneous
  Country: US (occurrence: US)
  Receive Date: 20181228
  Receipt Date: 20181228
  Transmission Date: 20190205
  Serious: No
  Sender: FDA-Public Use
  Company Number: US-SA-2018SA394839

PATIENT

DRUGS (2)
  1. HUMIRA [Concomitant]
     Active Substance: ADALIMUMAB
  2. KEVZARA [Suspect]
     Active Substance: SARILUMAB

REACTIONS (2)
  - Urinary tract infection [Unknown]
  - Drug ineffective [Unknown]
